FAERS Safety Report 9175744 (Version 2)
Quarter: 2012Q4

REPORT INFORMATION
  Report Type: 
  Country: US (occurrence: US)
  Receive Date: 20120917
  Receipt Date: 20121105
  Transmission Date: 20130627
  Serious: Yes (Death)
  Sender: FDA-Public Use
  Company Number: US-RB-044452-12

PATIENT
  Age: 24 Year
  Sex: Female

DRUGS (1)
  1. SUBOXONE UNSPECIFIED [Suspect]
     Indication: PRODUCT USED FOR UNKNOWN INDICATION
     Dosage: Unknown dosage details
     Route: 065

REACTIONS (2)
  - Substance abuse [Recovered/Resolved]
  - Victim of homicide [Fatal]
